FAERS Safety Report 10248609 (Version 1)
Quarter: 2014Q2

REPORT INFORMATION
  Report Type: Report from Study
  Country: US (occurrence: US)
  Receive Date: 20140620
  Receipt Date: 20140620
  Transmission Date: 20141212
  Serious: Yes (Other)
  Sender: FDA-Public Use
  Company Number: PHEH2014US012064

PATIENT
  Sex: Male
  Weight: 101.13 kg

DRUGS (19)
  1. ZOMETA [Suspect]
     Dosage: 4 MG, PER 5 ML VIAL
  2. REVLIMID [Suspect]
     Dosage: 25 MG, PER 21 DAYS
     Route: 048
     Dates: start: 201406
  3. REVLIMID [Suspect]
     Dosage: 10 MG, DAILY, PER 28 DAYS
     Route: 048
  4. REVLIMID [Suspect]
     Dosage: 15 MG, PER 21 DAYS
     Route: 048
  5. FLUCONAZOLE [Concomitant]
     Dosage: UNK UKN, UNK
  6. VIAGRA [Concomitant]
     Dosage: UNK UKN, UNK
  7. METFORMIN [Concomitant]
     Dosage: UNK UKN, UNK
  8. LISINOPRIL [Concomitant]
     Dosage: UNK UKN, UNK
  9. OMEPRAZOLE [Concomitant]
     Dosage: UNK UKN, UNK
  10. PRAVASTATIN [Concomitant]
     Dosage: UNK UKN, UNK
  11. FENOFIBRATE [Concomitant]
     Dosage: UNK UKN, UNK
  12. VITAMIN B12 [Concomitant]
     Dosage: UNK UKN, UNK
  13. VITAMIN B6 [Concomitant]
     Dosage: UNK UKN, UNK
  14. MULTIVITAMIN                       /00097801/ [Concomitant]
     Dosage: UNK UKN, UNK
  15. ASA [Concomitant]
     Dosage: UNK UKN, UNK
  16. B COMPLEX [Concomitant]
     Dosage: UNK UKN, UNK
  17. GLUCOSAMINE [Concomitant]
     Dosage: UNK UKN, UNK
  18. VALACYCLOVIR [Concomitant]
     Dosage: UNK UKN, UNK
  19. VITAMIN D [Concomitant]
     Dosage: UNK UKN, UNK

REACTIONS (2)
  - Neuropathy peripheral [Unknown]
  - Hypoaesthesia [Unknown]
